FAERS Safety Report 10485746 (Version 6)
Quarter: 2015Q1

REPORT INFORMATION
  Report Type: Spontaneous
  Country: US (occurrence: US)
  Receive Date: 20141001
  Receipt Date: 20150209
  Transmission Date: 20150720
  Serious: Yes (Other)
  Sender: FDA-Public Use
  Company Number: US-UNITED THERAPEUTICS-UNT-2014-007013

PATIENT
  Age: 62 Year
  Sex: Female
  Weight: 54.42 kg

DRUGS (6)
  1. REVATIO [Suspect]
     Active Substance: SILDENAFIL CITRATE
     Indication: PRODUCT USED FOR UNKNOWN INDICATION
  2. REMODULIN [Suspect]
     Active Substance: TREPROSTINIL
     Dosage: 0.074 ?G/KG, CONTINUING
     Route: 041
  3. REMODULIN [Suspect]
     Active Substance: TREPROSTINIL
     Indication: COR PULMONALE CHRONIC
     Dosage: 0.080 ?G/KG/MIN, CONTINUING
     Route: 041
     Dates: start: 20130517
  4. REMODULIN [Suspect]
     Active Substance: TREPROSTINIL
     Dosage: 0.070 ?G/KG/MIN, CONTINUING
     Route: 041
  5. CREON [Concomitant]
     Active Substance: PANCRELIPASE AMYLASE\PANCRELIPASE LIPASE\PANCRELIPASE PROTEASE
     Indication: PRODUCT USED FOR UNKNOWN INDICATION
  6. REMODULIN [Suspect]
     Active Substance: TREPROSTINIL
     Indication: PULMONARY HYPERTENSION
     Dosage: 0.080 ?G/KG, CONTINUING
     Route: 041

REACTIONS (25)
  - Vomiting [Recovering/Resolving]
  - Fatigue [Unknown]
  - Muscle atrophy [Unknown]
  - Blood electrolytes decreased [Unknown]
  - Tachycardia [Unknown]
  - Sinusitis [Unknown]
  - Toothache [Unknown]
  - Hypotension [Recovering/Resolving]
  - Palpitations [Unknown]
  - Depressed level of consciousness [Unknown]
  - Headache [Unknown]
  - Blood pressure increased [Unknown]
  - Alopecia [Unknown]
  - Dysentery [Recovered/Resolved]
  - Nausea [Recovering/Resolving]
  - Liver disorder [Not Recovered/Not Resolved]
  - Pain [Unknown]
  - Diarrhoea [Recovering/Resolving]
  - Chest pain [Unknown]
  - Hypertension [Recovering/Resolving]
  - Drug dose omission [Unknown]
  - Weight decreased [Recovered/Resolved]
  - Secretion discharge [Unknown]
  - Pancreatic disorder [Unknown]
  - Discomfort [Unknown]

NARRATIVE: CASE EVENT DATE: 2013
